FAERS Safety Report 6027979-9 (Version None)
Quarter: 2008Q4

REPORT INFORMATION
  Report Type: 
  Country: None (occurrence: None)
  Receive Date: 20081230
  Receipt Date: 20081216
  Transmission Date: 20090506
  Serious: Yes (Other)
  Sender: FDA-Public Use
  Company Number: 8040597

PATIENT
  Age: 65 Year
  Sex: Female

DRUGS (6)
  1. PREDNISOLONE [Suspect]
     Indication: IMMUNOSUPPRESSANT DRUG THERAPY
     Dosage: PO
     Route: 048
  2. PREDNISOLONE [Suspect]
     Indication: ORGAN TRANSPLANT
     Dosage: PO
     Route: 048
  3. AZATHIOPRINE [Suspect]
     Indication: IMMUNOSUPPRESSANT DRUG THERAPY
     Dosage: PO
     Route: 048
  4. AZATHIOPRINE [Suspect]
     Indication: ORGAN TRANSPLANT
     Dosage: PO
     Route: 048
  5. CYCLOSPORINE [Suspect]
     Indication: IMMUNOSUPPRESSANT DRUG THERAPY
     Dosage: PO
     Route: 048
  6. CYCLOSPORINE [Suspect]
     Indication: ORGAN TRANSPLANT
     Dosage: PO
     Route: 048

REACTIONS (1)
  - BASAL CELL CARCINOMA [None]
